FAERS Safety Report 12674130 (Version 3)
Quarter: 2016Q4

REPORT INFORMATION
  Report Type: Spontaneous
  Country: US (occurrence: US)
  Receive Date: 20160822
  Receipt Date: 20161010
  Transmission Date: 20170207
  Serious: Yes (Other)
  Sender: FDA-Public Use
  Company Number: US-JNJFOC-20160810174

PATIENT
  Sex: Female

DRUGS (1)
  1. BENADRYL [Suspect]
     Active Substance: DIPHENHYDRAMINE HYDROCHLORIDE
     Indication: FOOD ALLERGY
     Route: 065

REACTIONS (6)
  - Choking [Unknown]
  - Throat irritation [Unknown]
  - Retching [Unknown]
  - Hypersensitivity [Unknown]
  - Product use issue [Unknown]
  - Dyspnoea [Unknown]
